FAERS Safety Report 22265852 (Version 1)
Quarter: 2023Q2

REPORT INFORMATION
  Report Type: Spontaneous
  Country: US (occurrence: None)
  Receive Date: 20230426
  Receipt Date: 20230426
  Transmission Date: 20230722
  Serious: Yes (Death)
  Sender: FDA-Public Use
  Company Number: None

PATIENT
  Age: 80 Year
  Sex: Male

DRUGS (12)
  1. OPSUMIT [Suspect]
     Active Substance: MACITENTAN
     Indication: Pulmonary arterial hypertension
     Dosage: FREQUENCY : DAILY;?
     Route: 048
     Dates: start: 20180424, end: 20230403
  2. TYVASO [Suspect]
     Active Substance: TREPROSTINIL
  3. SILDENAFIL [Concomitant]
     Active Substance: SILDENAFIL
  4. TREPROSTINIL [Concomitant]
     Active Substance: TREPROSTINIL
  5. PREDNISONE [Concomitant]
     Active Substance: PREDNISONE
  6. FLONASE [Concomitant]
     Active Substance: FLUTICASONE PROPIONATE
  7. WIXELA INHUB [Concomitant]
     Active Substance: FLUTICASONE PROPIONATE\SALMETEROL XINAFOATE
  8. FLOMAX [Concomitant]
     Active Substance: TAMSULOSIN HYDROCHLORIDE
  9. FUROSEMIDE [Concomitant]
     Active Substance: FUROSEMIDE
  10. SPIRIVA RESPIMAT [Concomitant]
     Active Substance: TIOTROPIUM BROMIDE
  11. COLCHICINE [Concomitant]
     Active Substance: COLCHICINE
  12. Triamcinolone top cream [Concomitant]

REACTIONS (9)
  - Acute respiratory failure [None]
  - Deep vein thrombosis [None]
  - Atrial flutter [None]
  - Acute kidney injury [None]
  - Anaemia [None]
  - Urinary tract infection [None]
  - Therapy non-responder [None]
  - Hypernatraemia [None]
  - Hypophagia [None]

NARRATIVE: CASE EVENT DATE: 20230319
